FAERS Safety Report 9805462 (Version 1)
Quarter: 2014Q1

REPORT INFORMATION
  Report Type: Spontaneous
  Country: US (occurrence: None)
  Receive Date: 20140107
  Receipt Date: 20140107
  Transmission Date: 20141002
  Serious: Yes (Hospitalization)
  Sender: FDA-Public Use
  Company Number: UTC-042601

PATIENT
  Age: 37 Year
  Sex: Male

DRUGS (3)
  1. REMODULIN [Suspect]
     Indication: PRODUCT USED FOR UNKNOWN INDICATION
     Dosage: 47.52 UG/KG (0.033 UG/KG, 1 IN
     Route: 058
     Dates: start: 201309
  2. TYVASO [Suspect]
     Indication: PRODUCT USED FOR UNKNOWN INDICATION
     Route: 055
     Dates: end: 2013
  3. NORVASC (AMLODIPINE RESILATE) [Concomitant]

REACTIONS (5)
  - Dyspnoea [None]
  - Drug ineffective [None]
  - Adverse drug reaction [None]
  - Infusion site pain [None]
  - Pulmonary arterial pressure increased [None]
